FAERS Safety Report 12701460 (Version 1)
Quarter: 2016Q3

REPORT INFORMATION
  Report Type: Spontaneous
  Country: US (occurrence: US)
  Receive Date: 20160831
  Receipt Date: 20160831
  Transmission Date: 20161109
  Serious: No
  Sender: FDA-Public Use
  Company Number: US-PFIZER INC-2016400335

PATIENT
  Age: 82 Year
  Sex: Female

DRUGS (1)
  1. XELJANZ [Suspect]
     Active Substance: TOFACITINIB CITRATE
     Indication: RHEUMATOID ARTHRITIS
     Dosage: 5 MG, ONCE DAILY
     Dates: end: 20160804

REACTIONS (10)
  - Rhinorrhoea [Unknown]
  - Cough [Unknown]
  - Hypoaesthesia [Unknown]
  - Eyelid margin crusting [Unknown]
  - Dry skin [Unknown]
  - Skin exfoliation [Unknown]
  - Burning sensation [Unknown]
  - Sinus disorder [Unknown]
  - Hot flush [Unknown]
  - Paraesthesia [Unknown]
